FAERS Safety Report 15960642 (Version 2)
Quarter: 2019Q1

REPORT INFORMATION
  Report Type: Spontaneous
  Country: RU (occurrence: RU)
  Receive Date: 20190214
  Receipt Date: 20190306
  Transmission Date: 20190417
  Serious: Yes (Death, Other)
  Sender: FDA-Public Use
  Company Number: RU-CLINIGEN GROUP PLC/ CLINIGEN HEALTHCARE LTD-RU-CLGN-19-00078

PATIENT
  Age: 34 Year
  Sex: Male

DRUGS (15)
  1. MOXIFLOXACIN. [Concomitant]
     Active Substance: MOXIFLOXACIN
     Indication: AGRANULOCYTOSIS
  2. AMIKACIN. [Concomitant]
     Active Substance: AMIKACIN
     Indication: AGRANULOCYTOSIS
  3. GANCICLOVIR. [Concomitant]
     Active Substance: GANCICLOVIR
     Indication: CYTOMEGALOVIRUS INFECTION
  4. COLISTIMETHATE SODIUM. [Concomitant]
     Active Substance: COLISTIMETHATE SODIUM
     Indication: AGRANULOCYTOSIS
  5. BOTULINUM TOXIN [Concomitant]
     Active Substance: BOTULINUM TOXIN NOS
     Indication: IMPAIRED GASTRIC EMPTYING
  6. SULFAMETHOXAZOLE/TRIMETHOPRIM [Concomitant]
     Active Substance: SULFAMETHOXAZOLE\TRIMETHOPRIM
     Indication: AGRANULOCYTOSIS
  7. METHYLPREDNISOLONE. [Concomitant]
     Active Substance: METHYLPREDNISOLONE
     Indication: IMMUNOSUPPRESSANT DRUG THERAPY
     Dates: start: 20161026
  8. DORIPENEM. [Concomitant]
     Active Substance: DORIPENEM
     Indication: AGRANULOCYTOSIS
  9. MEROPENEM. [Concomitant]
     Active Substance: MEROPENEM
     Indication: AGRANULOCYTOSIS
  10. TACROLIMUS. [Concomitant]
     Active Substance: TACROLIMUS
     Indication: IMMUNOSUPPRESSANT DRUG THERAPY
  11. BOTULINUM TOXIN [Concomitant]
     Active Substance: BOTULINUM TOXIN NOS
  12. FOSCARNET SODIUM. [Suspect]
     Active Substance: FOSCARNET SODIUM
     Indication: CYTOMEGALOVIRUS INFECTION
  13. CEFTAZIDIME. [Concomitant]
     Active Substance: CEFTAZIDIME
     Indication: AGRANULOCYTOSIS
  14. ANIDULAFUNGIN [Concomitant]
     Active Substance: ANIDULAFUNGIN
     Indication: AGRANULOCYTOSIS
  15. NEOCYCOTEC [Concomitant]
     Indication: CYTOMEGALOVIRUS INFECTION

REACTIONS (3)
  - Cytopenia [Unknown]
  - Infection [Unknown]
  - Multiple organ dysfunction syndrome [Fatal]
